FAERS Safety Report 6737671-0 (Version None)
Quarter: 2010Q2

REPORT INFORMATION
  Report Type: 
  Country: None (occurrence: None)
  Receive Date: 20100524
  Receipt Date: 20100510
  Transmission Date: 20101027
  Serious: Yes (Hospitalization, Other)
  Sender: FDA-Public Use
  Company Number: PHHY2010CH29799

PATIENT
  Age: 30 Year
  Sex: Male

DRUGS (1)
  1. LEPONEX [Suspect]
     Dosage: 7 TABLETS OF 25 MG
     Dates: start: 20100104

REACTIONS (6)
  - AGITATION [None]
  - FATIGUE [None]
  - HALLUCINATIONS, MIXED [None]
  - OVERDOSE [None]
  - SOMNOLENCE [None]
  - TONGUE SPASM [None]
